FAERS Safety Report 9118303 (Version 1)
Quarter: 2013Q1

REPORT INFORMATION
  Report Type: Spontaneous
  Country: US (occurrence: None)
  Receive Date: 20130221
  Receipt Date: 20130221
  Transmission Date: 20140127
  Serious: Yes (Disabling, Other)
  Sender: FDA-Public Use
  Company Number: None

PATIENT
  Age: 59 Year
  Sex: Female
  Weight: 62.6 kg

DRUGS (2)
  1. LEVOFLOXACIN [Suspect]
     Indication: UPPER RESPIRATORY TRACT CONGESTION
     Dosage: ONE PILL DAILY
     Dates: start: 20121226, end: 20130103
  2. LEVOFLOXACIN [Suspect]
     Indication: EAR PAIN
     Dosage: ONE PILL DAILY
     Dates: start: 20121226, end: 20130103

REACTIONS (7)
  - Pain in extremity [None]
  - Arthralgia [None]
  - Hypersensitivity [None]
  - Pain in extremity [None]
  - Pain in extremity [None]
  - Headache [None]
  - Pain [None]
